FAERS Safety Report 13963289 (Version 1)
Quarter: 2017Q3

REPORT INFORMATION
  Report Type: Spontaneous
  Country: US (occurrence: None)
  Receive Date: 20170913
  Receipt Date: 20170913
  Transmission Date: 20171128
  Serious: Yes (Other)
  Sender: FDA-Public Use
  Company Number: None

PATIENT
  Age: 1 Year
  Sex: Male

DRUGS (10)
  1. METOCLOPRAMIDE. [Concomitant]
     Active Substance: METOCLOPRAMIDE
  2. KCL [Concomitant]
     Active Substance: POTASSIUM CHLORIDE
  3. REVATIO [Concomitant]
     Active Substance: SILDENAFIL CITRATE
  4. SPIRONOLACTONE. [Concomitant]
     Active Substance: SPIRONOLACTONE
  5. TREPROSTINIL [Concomitant]
     Active Substance: TREPROSTINIL
  6. FUROSEMIDE. [Concomitant]
     Active Substance: FUROSEMIDE
  7. TRACLEER [Suspect]
     Active Substance: BOSENTAN
     Indication: PULMONARY ARTERIAL HYPERTENSION
     Route: 048
  8. RANITIDINE. [Concomitant]
     Active Substance: RANITIDINE
  9. SODIUM CHLORIDE. [Concomitant]
     Active Substance: SODIUM CHLORIDE
  10. CHLOROTHIAZIDE. [Concomitant]
     Active Substance: CHLOROTHIAZIDE

REACTIONS (2)
  - Dyspnoea [None]
  - Respiratory distress [None]

NARRATIVE: CASE EVENT DATE: 20170821
